FAERS Safety Report 6641817-2 (Version None)
Quarter: 2010Q1

REPORT INFORMATION
  Report Type: 
  Country: None (occurrence: None)
  Receive Date: 20100316
  Receipt Date: 20100301
  Transmission Date: 20100710
  Serious: Yes (Death, Hospitalization, Other)
  Sender: FDA-Public Use
  Company Number: MC201000073

PATIENT

DRUGS (3)
  1. ANGIOMAX [Suspect]
     Indication: CAROTID ARTERY STENT INSERTION
     Dosage: 0.75 MG/KG, BOLUS, INTRAVENOUS; 1.75 MG/KG, HR, INTRAVENOUS
     Route: 042
  2. ASPIRIN [Concomitant]
  3. CLOPIDOGREL [Concomitant]

REACTIONS (8)
  - CEREBROVASCULAR ACCIDENT [None]
  - ECCHYMOSIS [None]
  - HAEMATOMA [None]
  - HAEMORRHAGE [None]
  - PROCEDURAL HYPOTENSION [None]
  - PUNCTURE SITE HAEMORRHAGE [None]
  - TRANSIENT ISCHAEMIC ATTACK [None]
  - VASCULAR PSEUDOANEURYSM [None]
